FAERS Safety Report 11082079 (Version 2)
Quarter: 2015Q3

REPORT INFORMATION
  Report Type: Spontaneous
  Country: JP (occurrence: JP)
  Receive Date: 20150501
  Receipt Date: 20150716
  Transmission Date: 20151125
  Serious: No
  Sender: FDA-Public Use
  Company Number: JP-GLAXOSMITHKLINE-JP2015JPN057323

PATIENT
  Age: 40 Year
  Sex: Female

DRUGS (1)
  1. FLUTICASONE FUROATE + VILANTEROL TRIFENATATE [Suspect]
     Active Substance: FLUTICASONE FUROATE\VILANTEROL TRIFENATATE
     Indication: ASTHMA
     Dosage: 100 ?G, QD
     Route: 055
     Dates: start: 201504

REACTIONS (1)
  - Circumoral oedema [Recovering/Resolving]

NARRATIVE: CASE EVENT DATE: 201504
